FAERS Safety Report 9287941 (Version 2)
Quarter: 2013Q2

REPORT INFORMATION
  Report Type: Spontaneous
  Country: US (occurrence: US)
  Receive Date: 20130514
  Receipt Date: 20130620
  Transmission Date: 20140414
  Serious: Yes (Hospitalization)
  Sender: FDA-Public Use
  Company Number: US-BAYER-2013-058056

PATIENT
  Age: 32 Year
  Sex: Female
  Weight: 102.95 kg

DRUGS (4)
  1. YASMIN [Suspect]
  2. OCELLA [Suspect]
     Indication: OVARIAN CYST
  3. XANAX [Concomitant]
     Indication: ANXIETY
  4. NEXIUM [Concomitant]

REACTIONS (1)
  - Pulmonary embolism [None]
